FAERS Safety Report 6346702-1 (Version None)
Quarter: 2009Q3

REPORT INFORMATION
  Report Type: 
  Country: None (occurrence: None)
  Receive Date: 20090904
  Receipt Date: 20090818
  Transmission Date: 20100115
  Serious: Yes (Hospitalization)
  Sender: FDA-Public Use
  Company Number: 002741

PATIENT
  Age: 75 Year
  Sex: Female
  Weight: 72 kg

DRUGS (7)
  1. MACUGEN [Suspect]
     Indication: MACULAR DEGENERATION
     Dosage: 1 EVERY 6 WEEEKS, INTRAOCULAR
     Route: 031
     Dates: start: 20070613, end: 20090415
  2. TROPICAMIDE [Concomitant]
  3. FLUREKAIN (FLUORESCEIN SODIUM, OXYBUPROCAINE HYDROCHLORIDE) [Concomitant]
  4. GENTAMICIN SULFATE [Concomitant]
  5. BETAISODONA (POVIDONE-IODINE) [Concomitant]
  6. PASSEDAN-NERVENTROPFEN (AURANTII CORTEX FRUCTUS DULCIS, CINNAMON, MELI [Concomitant]
  7. LOVENOX (HEPARIN-FRACTION, SODIUM SODIUM) [Concomitant]

REACTIONS (1)
  - MENISCUS OPERATION [None]
